FAERS Safety Report 4455739-9 (Version None)
Quarter: 2004Q3

REPORT INFORMATION
  Report Type: 
  Country: None (occurrence: None)
  Receive Date: 20040920
  Receipt Date: 20040913
  Transmission Date: 20050211
  Serious: Yes (Other)
  Sender: FDA-Public Use
  Company Number: 2004233171US

PATIENT
  Age: 41 Year
  Sex: Female
  Weight: 80.3 kg

DRUGS (15)
  1. AZULFIDINE [Suspect]
     Indication: CROHN'S DISEASE
  2. INFLIXIMAB [Suspect]
     Indication: CROHN'S DISEASE
     Dosage: SEE IMAGE
     Route: 042
     Dates: start: 20020930
  3. INFLIXIMAB [Suspect]
     Indication: CROHN'S DISEASE
     Dosage: SEE IMAGE
     Route: 042
     Dates: start: 20030123
  4. INFLIXIMAB [Suspect]
     Indication: CROHN'S DISEASE
     Dosage: SEE IMAGE
     Route: 042
     Dates: start: 20030320
  5. INFLIXIMAB [Suspect]
     Indication: CROHN'S DISEASE
     Dosage: SEE IMAGE
     Route: 042
     Dates: start: 20030522
  6. INFLIXIMAB [Suspect]
     Indication: CROHN'S DISEASE
     Dosage: SEE IMAGE
     Route: 042
     Dates: start: 20030717
  7. INFLIXIMAB [Suspect]
     Indication: CROHN'S DISEASE
     Dosage: SEE IMAGE
     Route: 042
     Dates: start: 20031002
  8. INFLIXIMAB [Suspect]
     Indication: CROHN'S DISEASE
     Dosage: SEE IMAGE
     Route: 042
     Dates: start: 20031123
  9. INFLIXIMAB [Suspect]
     Indication: CROHN'S DISEASE
     Dosage: SEE IMAGE
     Route: 042
     Dates: start: 20031124
  10. INFLIXIMAB [Suspect]
     Indication: CROHN'S DISEASE
     Dosage: SEE IMAGE
     Route: 042
     Dates: start: 20040126
  11. INFLIXIMAB [Suspect]
     Indication: CROHN'S DISEASE
     Dosage: SEE IMAGE
     Route: 042
     Dates: start: 20040315
  12. INFLIXIMAB [Suspect]
     Indication: CROHN'S DISEASE
     Dosage: SEE IMAGE
     Route: 042
     Dates: start: 20040503
  13. INFLIXIMAB [Suspect]
     Indication: CROHN'S DISEASE
     Dosage: SEE IMAGE
     Route: 042
     Dates: start: 20040607
  14. AZATHIOPRINE [Suspect]
     Indication: CROHN'S DISEASE
  15. OTEHR ANTIDIARRHOEALS [Suspect]
     Indication: CROHN'S DISEASE

REACTIONS (4)
  - COLON CANCER [None]
  - GASTROINTESTINAL DYSPLASIA [None]
  - GASTROINTESTINAL TRACT ADENOMA [None]
  - RECTAL POLYP [None]
